FAERS Safety Report 5298858-X (Version None)
Quarter: 2007Q2

REPORT INFORMATION
  Report Type: 
  Country: None (occurrence: None)
  Receive Date: 20070417
  Receipt Date: 20070405
  Transmission Date: 20071010
  Serious: Yes (Other)
  Sender: FDA-Public Use
  Company Number: GBWYE293902APR07

PATIENT
  Age: 28 Year
  Sex: Female

DRUGS (7)
  1. IBUPROFEN [Suspect]
     Dosage: UNKNOWN
     Route: 048
  2. SERTRALINE [Concomitant]
     Dosage: UNKNOWN
     Dates: start: 20010501
  3. SULPIRIDE [Concomitant]
     Dosage: UNKNOWN
     Dates: start: 20010501
  4. PAROXETINE HYDROCHLORIDE [Suspect]
     Indication: DEPRESSION
     Dosage: UNKNOWN
     Dates: start: 19970902, end: 19990301
  5. PAROXETINE HYDROCHLORIDE [Suspect]
     Dosage: ONE QUARTER OF A TABLET ONLY, DOSE NOT SPECIFIED
     Dates: start: 19990301
  6. PAROXETINE HYDROCHLORIDE [Suspect]
  7. PAROXETINE HYDROCHLORIDE [Suspect]
     Dates: start: 20000907, end: 20010101

REACTIONS (21)
  - ALCOHOLISM [None]
  - ANXIETY [None]
  - ASTHENIA [None]
  - DEPRESSION [None]
  - DRUG ABUSER [None]
  - DRUG WITHDRAWAL SYNDROME [None]
  - DRY MOUTH [None]
  - EMOTIONAL DISTRESS [None]
  - FEELING ABNORMAL [None]
  - HYPERHIDROSIS [None]
  - HYPOAESTHESIA [None]
  - INSOMNIA [None]
  - ORAL INTAKE REDUCED [None]
  - OVERDOSE [None]
  - PARANOIA [None]
  - PRURITUS [None]
  - REBOUND EFFECT [None]
  - SELF-INJURIOUS IDEATION [None]
  - SUICIDAL IDEATION [None]
  - TEARFULNESS [None]
  - TREATMENT NONCOMPLIANCE [None]
